FAERS Safety Report 6419744-5 (Version None)
Quarter: 2009Q4

REPORT INFORMATION
  Report Type: 
  Country: None (occurrence: None)
  Receive Date: 20091029
  Receipt Date: 20091020
  Transmission Date: 20100525
  Serious: Yes (Hospitalization, Disabling, Other)
  Sender: FDA-Public Use
  Company Number: GB-BAXTER-2005BH003762

PATIENT
  Age: 75 Year
  Sex: Male

DRUGS (5)
  1. GENTAMICIN [Suspect]
     Indication: DRUG USE FOR UNKNOWN INDICATION
     Dosage: DOSE UNIT:UNKNOWN
     Route: 065
  2. ETORICOXIB [Suspect]
     Indication: OSTEOARTHRITIS
     Route: 048
     Dates: start: 20041001, end: 20041001
  3. CO-TENIDONE [Concomitant]
     Indication: HYPERTENSION
  4. IRBESARTAN [Concomitant]
     Indication: HYPERTENSION
  5. DETRUSITOL [Concomitant]
     Indication: POLLAKIURIA

REACTIONS (2)
  - ANAPHYLACTIC REACTION [None]
  - CEREBROVASCULAR ACCIDENT [None]
